FAERS Safety Report 5416041-1 (Version None)
Quarter: 2007Q3

REPORT INFORMATION
  Report Type: 
  Country: None (occurrence: None)
  Receive Date: 20070718
  Receipt Date: 20070125
  Transmission Date: 20080115
  Serious: Yes (Other)
  Sender: FDA-Public Use
  Company Number: 2007007019

PATIENT
  Sex: Male

DRUGS (2)
  1. CELEBREX [Suspect]
  2. ETANERCEPT (ETANERCEPT) [Suspect]
     Indication: PSORIATIC ARTHROPATHY
     Dosage: (25 MG,2 IN 1 WK),SUBCUTANEOUS
     Route: 058

REACTIONS (2)
  - ALANINE AMINOTRANSFERASE INCREASED [None]
  - ASPARTATE AMINOTRANSFERASE INCREASED [None]
